FAERS Safety Report 7483780-0 (Version None)
Quarter: 2011Q2

REPORT INFORMATION
  Report Type: 
  Country: None (occurrence: None)
  Receive Date: 20110517
  Receipt Date: 20110513
  Transmission Date: 20111010
  Serious: Yes (Death, Hospitalization)
  Sender: FDA-Public Use
  Company Number: PHHY2010MX57778

PATIENT
  Sex: Female

DRUGS (4)
  1. PROTON [Concomitant]
  2. BI-EUGLUCON [Concomitant]
     Indication: DIABETES MELLITUS
     Dosage: 1/2 TABLET DAILY
     Route: 048
  3. EXJADE [Suspect]
     Indication: IRON OVERLOAD
     Dosage: 1000 MG,DAILY
     Route: 048
     Dates: start: 20080101, end: 20100801
  4. METICORTEN [Concomitant]

REACTIONS (3)
  - INFECTION [None]
  - CARDIAC FAILURE [None]
  - MULTI-ORGAN FAILURE [None]
